FAERS Safety Report 17101603 (Version 1)
Quarter: 2019Q4

REPORT INFORMATION
  Report Type: Spontaneous
  Country: SE (occurrence: SE)
  Receive Date: 20191202
  Receipt Date: 20191202
  Transmission Date: 20200122
  Serious: Yes (Hospitalization)
  Sender: FDA-Public Use
  Company Number: SE-PURDUE PHARMA-GBR-2019-0073184

PATIENT
  Age: 49 Year
  Sex: Male

DRUGS (2)
  1. OXYCODONE HYDROCHLORIDE. [Suspect]
     Active Substance: OXYCODONE HYDROCHLORIDE
     Indication: PRODUCT USED FOR UNKNOWN INDICATION
     Dosage: UNK
     Route: 065
     Dates: start: 20181202, end: 20181202
  2. LERGIGAN                           /00033002/ [Suspect]
     Active Substance: PROMETHAZINE HYDROCHLORIDE
     Indication: PRODUCT USED FOR UNKNOWN INDICATION
     Dosage: 1750 MG, UNK
     Route: 048
     Dates: start: 20181202, end: 20181202

REACTIONS (5)
  - Intentional overdose [Unknown]
  - Loss of consciousness [Unknown]
  - Intentional self-injury [Unknown]
  - Mydriasis [Unknown]
  - Anxiety [Unknown]

NARRATIVE: CASE EVENT DATE: 20181202
